FAERS Safety Report 10625803 (Version 1)
Quarter: 2014Q4

REPORT INFORMATION
  Report Type: Report from Study
  Country: US (occurrence: US)
  Receive Date: 20141204
  Receipt Date: 20141204
  Transmission Date: 20150529
  Serious: Yes (Hospitalization)
  Sender: FDA-Public Use
  Company Number: US-SA-2014SA164382

PATIENT
  Sex: Female

DRUGS (2)
  1. SOLOSTAR [Concomitant]
     Active Substance: DEVICE
     Dates: start: 2012
  2. LANTUS SOLOSTAR [Suspect]
     Active Substance: INSULIN GLARGINE
     Dosage: DOSE-30 UNITS TWICE DAILY AND SOMETIMES THREE TIMES A DAY DEPENDING ON HER SUGARS DOSE:30 UNIT(S)
     Route: 065
     Dates: start: 2012

REACTIONS (2)
  - Drug administration error [Unknown]
  - Pancreatitis [Unknown]
